FAERS Safety Report 9522094 (Version 2)
Quarter: 2014Q1

REPORT INFORMATION
  Report Type: Spontaneous
  Country: US (occurrence: None)
  Receive Date: 20130821
  Receipt Date: 20131211
  Transmission Date: 20141002
  Serious: Yes (Life-Threatening)
  Sender: FDA-Public Use
  Company Number: 003-132

PATIENT
  Age: 68 Year
  Sex: Male

DRUGS (5)
  1. CROFAB (BTG INTERNATIONAL, INC) [Suspect]
     Indication: SNAKE BITE
     Dates: start: 20130813
  2. ENALAPRIL [Concomitant]
  3. DOXAZOSIN [Concomitant]
  4. SIMVASTATIN [Concomitant]
  5. ST. JOHN^S WORT [Concomitant]

REACTIONS (11)
  - Tenderness [None]
  - Swelling [None]
  - Platelet count decreased [None]
  - Urticaria [None]
  - Hypotension [None]
  - Angioedema [None]
  - Swollen tongue [None]
  - Blood pressure systolic decreased [None]
  - Vomiting [None]
  - Rash maculo-papular [None]
  - Pain in extremity [None]
